FAERS Safety Report 25953646 (Version 1)
Quarter: 2025Q4

REPORT INFORMATION
  Report Type: Spontaneous
  Country: US (occurrence: US)
  Receive Date: 20251023
  Receipt Date: 20251023
  Transmission Date: 20260118
  Serious: No
  Sender: ANI
  Company Number: US-ANIPHARMA-2025-US-031895

PATIENT
  Sex: Female

DRUGS (8)
  1. CYCLOBENZAPR POW [Concomitant]
  2. DULOXETINE H CPE 40MG [Concomitant]
  3. MULTIVITAMIN TAB [Concomitant]
  4. PLAQUENIL [Concomitant]
     Active Substance: HYDROXYCHLOROQUINE SULFATE
  5. PREDNISONE [Concomitant]
     Active Substance: PREDNISONE
  6. PROBIOTIC TAB [Concomitant]
  7. SIMPONI SOS 100MG/ML [Concomitant]
  8. CORTICOTROPIN [Suspect]
     Active Substance: CORTICOTROPIN
     Indication: Rheumatoid arthritis
     Dosage: INJECT 80 UNITS (1 ML) SUBCUTANEOUSLY 4 TIMES PER WEEK
     Route: 058

REACTIONS (3)
  - Product dose omission issue [Unknown]
  - Drug ineffective [Unknown]
  - Headache [Unknown]
